FAERS Safety Report 4405243-9 (Version None)
Quarter: 2004Q3

REPORT INFORMATION
  Report Type: 
  Country: None (occurrence: None)
  Receive Date: 20040723
  Receipt Date: 20040713
  Transmission Date: 20050211
  Serious: Yes (Other)
  Sender: FDA-Public Use
  Company Number: PHEH2004US07673

PATIENT
  Age: 64 Year
  Sex: Female

DRUGS (3)
  1. ZOMETA [Suspect]
     Indication: METASTASES TO BONE
     Dosage: 4 MG MONTHLY
     Route: 042
     Dates: start: 20020611, end: 20040609
  2. TAXOL [Concomitant]
     Indication: NEOPLASM MALIGNANT
     Dosage: 80 MG/M2 WEEKLY
     Dates: start: 20020619
  3. CARBOPLATIN [Concomitant]
     Indication: NEOPLASM MALIGNANT
     Dates: start: 20020619

REACTIONS (3)
  - ANAEMIA [None]
  - DEEP VEIN THROMBOSIS [None]
  - OSTEONECROSIS [None]
